FAERS Safety Report 15659649 (Version 2)
Quarter: 2018Q4

REPORT INFORMATION
  Report Type: Report from Study
  Country: None (occurrence: CH)
  Receive Date: 20181127
  Receipt Date: 20181212
  Transmission Date: 20190205
  Serious: Yes (Life-Threatening, Hospitalization, Other)
  Sender: FDA-Public Use
  Company Number: CH-ABBVIE-18K-151-2551146-00

PATIENT
  Age: 37 Year
  Sex: Male
  Weight: 92 kg

DRUGS (9)
  1. HUMIRA [Suspect]
     Active Substance: ADALIMUMAB
     Indication: AXIAL SPONDYLOARTHRITIS
     Route: 058
     Dates: start: 20080901, end: 20180401
  2. TAMSULOSIN SANDOZ ECO [Concomitant]
     Indication: PRODUCT USED FOR UNKNOWN INDICATION
  3. NOVALGIN (METAMIZOLE SODIUM) [Concomitant]
     Active Substance: METAMIZOLE SODIUM
     Indication: PRODUCT USED FOR UNKNOWN INDICATION
  4. HUMIRA [Suspect]
     Active Substance: ADALIMUMAB
     Indication: CROHN^S DISEASE
  5. ACIDUM FOLICUM STREULI [Concomitant]
     Active Substance: FOLIC ACID
     Indication: PRODUCT USED FOR UNKNOWN INDICATION
  6. PANTOPRAZOL [Concomitant]
     Active Substance: PANTOPRAZOLE SODIUM
     Indication: PRODUCT USED FOR UNKNOWN INDICATION
  7. DAFALGAN [Concomitant]
     Active Substance: ACETAMINOPHEN
     Indication: PRODUCT USED FOR UNKNOWN INDICATION
  8. VALTREX [Concomitant]
     Active Substance: VALACYCLOVIR HYDROCHLORIDE
     Indication: PRODUCT USED FOR UNKNOWN INDICATION
  9. HUMIRA [Suspect]
     Active Substance: ADALIMUMAB
     Indication: ANKYLOSING SPONDYLITIS

REACTIONS (24)
  - Obstructive pancreatitis [Recovered/Resolved]
  - Acute myeloid leukaemia [Not Recovered/Not Resolved]
  - Abdominal hernia [Unknown]
  - Dysphagia [Unknown]
  - Diarrhoea [Unknown]
  - Porcelain gallbladder [Unknown]
  - Cholecystitis chronic [Recovered/Resolved]
  - Umbilical haematoma [Unknown]
  - Splenomegaly [Unknown]
  - Neutropenia [Unknown]
  - Mucosal inflammation [Unknown]
  - Duodenitis [Unknown]
  - Crohn^s disease [Unknown]
  - Subcutaneous abscess [Unknown]
  - Staphylococcal bacteraemia [Unknown]
  - Neutropenia [Recovered/Resolved]
  - Atypical pneumonia [Unknown]
  - Device related infection [Unknown]
  - Neutropenic colitis [Unknown]
  - Gastritis [Unknown]
  - Cholelithiasis [Recovered/Resolved]
  - Nausea [Unknown]
  - Engraftment syndrome [Unknown]
  - Normochromic normocytic anaemia [Unknown]

NARRATIVE: CASE EVENT DATE: 2015
